FAERS Safety Report 8391194 (Version 6)
Quarter: 2013Q3

REPORT INFORMATION
  Report Type: Spontaneous
  Country: JP (occurrence: JP)
  Receive Date: 20120206
  Receipt Date: 20130729
  Transmission Date: 20140515
  Serious: Yes (Death, Hospitalization)
  Sender: FDA-Public Use
  Company Number: JP-B.I. PHARMACEUTICALS,INC./RIDGEFIELD-2012-BP-02185NB

PATIENT
  Age: 70 Year
  Sex: Female
  Weight: 60 kg

DRUGS (16)
  1. PRADAXA [Suspect]
     Indication: ATRIAL FIBRILLATION
     Dosage: 300 MG
     Route: 048
     Dates: start: 20110701
  2. NICORANDIS [Suspect]
     Indication: ANGINA PECTORIS
     Dosage: 15 MG
     Route: 048
  3. CARNACULIN [Suspect]
     Dosage: 100 U
     Route: 048
  4. CIPROXAN [Concomitant]
     Dosage: 600 MG
     Route: 048
  5. RHEUMATREX [Concomitant]
     Dosage: 6 MG
     Route: 048
  6. BLOPRESS [Concomitant]
     Dosage: 4 MG
     Route: 048
  7. TAKEPRON [Concomitant]
     Dosage: 15 MG
     Route: 048
  8. GASPORT [Concomitant]
     Dosage: 30 MG
     Route: 048
  9. AMOBAN [Concomitant]
     Dosage: 7.5 MG
     Route: 048
  10. MYONAL [Concomitant]
     Dosage: 150 MG
     Route: 048
  11. CELECOX [Concomitant]
     Dosage: 200 MG
     Route: 048
  12. FOLIAMIN [Concomitant]
     Dosage: 5 MG
     Route: 048
  13. MICARDIS [Concomitant]
     Dosage: 40 MG
     Route: 048
  14. TERNELIN [Concomitant]
     Dosage: 1 MG
     Route: 048
  15. CIBENOL [Concomitant]
     Indication: ATRIAL FIBRILLATION
     Dosage: 100 MG
     Route: 048
     Dates: start: 20110705, end: 20111206
  16. AMLODIN [Concomitant]
     Indication: HYPERTENSION
     Dosage: 5 MG
     Route: 048

REACTIONS (3)
  - Cerebral haemorrhage [Fatal]
  - Procedural haemorrhage [Fatal]
  - Disseminated intravascular coagulation [Fatal]
